FAERS Safety Report 10567295 (Version 1)
Quarter: 2014Q4

REPORT INFORMATION
  Report Type: Spontaneous
  Country: US (occurrence: US)
  Receive Date: 20141106
  Receipt Date: 20141106
  Transmission Date: 20150529
  Serious: Yes (Hospitalization, Other)
  Sender: FDA-Public Use
  Company Number: US-009507513-1411USA000854

PATIENT
  Sex: Female
  Weight: 92.52 kg

DRUGS (1)
  1. NEXPLANON [Suspect]
     Active Substance: ETONOGESTREL
     Indication: CONTRACEPTION
     Dosage: 3 YEAR IMPLANT, IMPLANT LEFT ARM
     Route: 059
     Dates: start: 20140221

REACTIONS (5)
  - Weight increased [Unknown]
  - Cerebrovascular accident [Unknown]
  - Mood altered [Unknown]
  - Dizziness [Unknown]
  - Nausea [Unknown]

NARRATIVE: CASE EVENT DATE: 2014
